FAERS Safety Report 6175475-0 (Version None)
Quarter: 2009Q2

REPORT INFORMATION
  Report Type: 
  Country: None (occurrence: None)
  Receive Date: 20090429
  Receipt Date: 20090421
  Transmission Date: 20091009
  Serious: Yes (Hospitalization)
  Sender: FDA-Public Use
  Company Number: 191963ISR

PATIENT
  Age: 86 Year
  Sex: Male

DRUGS (6)
  1. WARFARIN SODIUM [Suspect]
     Indication: CEREBROVASCULAR ACCIDENT PROPHYLAXIS
     Dosage: 3 MG (3 MG, 1 IN 1 D) ORAL
     Route: 048
     Dates: start: 20061002, end: 20061022
  2. WARFARIN SODIUM [Suspect]
     Indication: EMBOLISM
     Dosage: 3 MG (3 MG, 1 IN 1 D) ORAL
     Route: 048
     Dates: start: 20061002, end: 20061022
  3. LOVASTATIN [Concomitant]
  4. PERINDOPRIL [Concomitant]
  5. FUROSEMIDE [Concomitant]
  6. SLINK [Concomitant]

REACTIONS (4)
  - COAGULOPATHY [None]
  - OVERDOSE [None]
  - STRESS ULCER [None]
  - UPPER GASTROINTESTINAL HAEMORRHAGE [None]
